FAERS Safety Report 25365813 (Version 3)
Quarter: 2025Q3

REPORT INFORMATION
  Report Type: Spontaneous
  Country: US (occurrence: US)
  Receive Date: 20250528
  Receipt Date: 20250810
  Transmission Date: 20251021
  Serious: Yes (Other)
  Sender: ALEXION PHARMACEUTICALS
  Company Number: US-AstraZeneca-CH-00876161A

PATIENT
  Sex: Male
  Weight: 79.365 kg

DRUGS (12)
  1. FARXIGA [Suspect]
     Active Substance: DAPAGLIFLOZIN PROPANEDIOL
     Indication: Cardiac failure congestive
     Dosage: 5 MILLIGRAM, QD
     Route: 065
     Dates: start: 20250130, end: 20250527
  2. CRESTOR [Suspect]
     Active Substance: ROSUVASTATIN CALCIUM
     Dosage: 5 MILLIGRAM, TID
     Route: 065
  3. COREG [Concomitant]
     Active Substance: CARVEDILOL
     Dosage: 12.5 MILLIGRAM, BID
     Route: 065
  4. DIGOXIN [Concomitant]
     Active Substance: DIGOXIN
     Dosage: 0.125 MILLIGRAM, QD
     Route: 065
  5. ENTRESTO [Concomitant]
     Active Substance: SACUBITRIL\VALSARTAN
     Dosage: 49.51 MILLIGRAM, BID
     Route: 065
  6. VITAMIN D3 [Concomitant]
     Active Substance: CHOLECALCIFEROL
     Dosage: 2000 I.U. EVERY MORNING
     Route: 065
  7. Coq [Concomitant]
     Dosage: 100 MILLIGRAM, EVERY MORNING
     Route: 065
  8. Neuro b [Concomitant]
     Dosage: 800 UNK, QD
     Route: 065
  9. VITAMINS [Concomitant]
     Active Substance: VITAMINS
     Dosage: UNK, EVERY MORNING
     Route: 065
  10. TYLENOL EXTRA STRENGTH [Concomitant]
     Active Substance: ACETAMINOPHEN
     Dosage: UNK, BID
     Route: 065
  11. ASPIRIN [Concomitant]
     Active Substance: ASPIRIN
     Dosage: 81 MILLIGRAM, QD
     Route: 065
  12. CARAFATE [Concomitant]
     Active Substance: SUCRALFATE
     Dosage: UNK, TID
     Route: 065

REACTIONS (3)
  - Cardiac flutter [Not Recovered/Not Resolved]
  - Gastritis erosive [Unknown]
  - Drug ineffective [Not Recovered/Not Resolved]
